FAERS Safety Report 5031755-3 (Version None)
Quarter: 2006Q2

REPORT INFORMATION
  Report Type: 
  Country: None (occurrence: None)
  Receive Date: 20060619
  Receipt Date: 20060609
  Transmission Date: 20061013
  Serious: Yes (Hospitalization)
  Sender: FDA-Public Use
  Company Number: 2006-06-0645

PATIENT
  Age: 48 Year
  Sex: Male

DRUGS (1)
  1. ELOCON [Suspect]
     Indication: DERMATOSIS
     Dosage: 0.1% TOP-DERM
     Route: 061
     Dates: start: 20060602

REACTIONS (1)
  - BLOOD PRESSURE INCREASED [None]
